FAERS Safety Report 6817866-8 (Version None)
Quarter: 2010Q3

REPORT INFORMATION
  Report Type: 
  Country: None (occurrence: None)
  Receive Date: 20100706
  Receipt Date: 20100701
  Transmission Date: 20110219
  Serious: Yes (Other)
  Sender: FDA-Public Use
  Company Number: US-MERCK-0902USA03922

PATIENT
  Age: 59 Year
  Sex: Female
  Weight: 101 kg

DRUGS (13)
  1. FOSAMAX [Suspect]
     Indication: OSTEOPOROSIS
     Route: 048
     Dates: start: 20050901, end: 20070111
  2. FOSAMAX [Suspect]
     Route: 048
     Dates: start: 20050101
  3. FOSAMAX PLUS D [Suspect]
     Indication: OSTEOPOROSIS
     Route: 048
     Dates: start: 20070401, end: 20071001
  4. LEVOTHROID [Concomitant]
     Indication: THYROID DISORDER
     Route: 065
     Dates: start: 20060310
  5. IMIPRAMINE HYDROCHLORIDE [Concomitant]
     Indication: DEPRESSION
     Route: 065
     Dates: start: 20060310
  6. RELAFEN [Concomitant]
     Indication: ARTHRITIS
     Route: 065
     Dates: start: 20060404, end: 20071026
  7. GLIPIZIDE [Concomitant]
     Indication: DIABETES MELLITUS
     Route: 065
     Dates: start: 20060410
  8. ACTOS [Concomitant]
     Indication: DIABETES MELLITUS
     Route: 065
     Dates: start: 20060424
  9. METFORMIN [Concomitant]
     Indication: DIABETES MELLITUS
     Route: 065
     Dates: start: 20060525
  10. METOPROLOL [Concomitant]
     Indication: HYPERTENSION
     Route: 065
     Dates: start: 20060501, end: 20060803
  11. LOVASTATIN [Concomitant]
     Indication: BLOOD CHOLESTEROL INCREASED
     Route: 065
     Dates: start: 20060501, end: 20060907
  12. SIMVASTATIN [Concomitant]
     Indication: BLOOD CHOLESTEROL INCREASED
     Route: 065
     Dates: start: 20060907
  13. DITROPAN [Concomitant]
     Indication: BLADDER DISORDER
     Route: 065
     Dates: start: 20060525, end: 20070517

REACTIONS (30)
  - ARTHROPATHY [None]
  - BONE DENSITY DECREASED [None]
  - DENTAL CARIES [None]
  - DEPRESSION [None]
  - DIABETES MELLITUS INADEQUATE CONTROL [None]
  - DIARRHOEA [None]
  - DYSLIPIDAEMIA [None]
  - FISTULA [None]
  - GASTROINTESTINAL DISORDER [None]
  - HUMERUS FRACTURE [None]
  - HYPERTENSION [None]
  - IMPAIRED HEALING [None]
  - INFECTION [None]
  - JAW DISORDER [None]
  - LICHEN SCLEROSUS [None]
  - MAJOR DEPRESSION [None]
  - NEOPLASM [None]
  - ORAL HERPES [None]
  - ORAL INFECTION [None]
  - ORAL TORUS [None]
  - OSTEOARTHRITIS [None]
  - OSTEOMYELITIS [None]
  - OSTEONECROSIS OF JAW [None]
  - RADIUS FRACTURE [None]
  - RENAL IMPAIRMENT [None]
  - STOMATITIS [None]
  - SYNCOPE [None]
  - TOOTH ABSCESS [None]
  - TYPE 1 DIABETES MELLITUS [None]
  - UPPER LIMB FRACTURE [None]
